FAERS Safety Report 25750454 (Version 1)
Quarter: 2025Q3

REPORT INFORMATION
  Report Type: Report from Study
  Country: US (occurrence: US)
  Receive Date: 20250902
  Receipt Date: 20250902
  Transmission Date: 20251021
  Serious: Yes (Death)
  Sender: OTSUKA
  Company Number: US-MMM-Otsuka-0ZAK6OPQ

PATIENT
  Sex: Female

DRUGS (2)
  1. BREXPIPRAZOLE [Suspect]
     Active Substance: BREXPIPRAZOLE
     Indication: Dementia
     Dosage: 3 MG, QD
     Route: 065
  2. BREXPIPRAZOLE [Suspect]
     Active Substance: BREXPIPRAZOLE
     Indication: Agitation
     Dosage: 4 MG, QD
     Route: 065

REACTIONS (5)
  - Death [Fatal]
  - Aggression [Unknown]
  - Screaming [Unknown]
  - Fear [Unknown]
  - Product use in unapproved indication [Unknown]
